FAERS Safety Report 16045494 (Version 2)
Quarter: 2019Q2

REPORT INFORMATION
  Report Type: Spontaneous
  Country: US (occurrence: US)
  Receive Date: 20190307
  Receipt Date: 20190410
  Transmission Date: 20190711
  Serious: No
  Sender: FDA-Public Use
  Company Number: US-ASTRAZENECA-2019SE23933

PATIENT
  Age: 3439 Week
  Sex: Female
  Weight: 109.8 kg

DRUGS (2)
  1. BYDUREON [Suspect]
     Active Substance: EXENATIDE
     Indication: DIABETES MELLITUS
     Route: 058
  2. LEVEMIR [Concomitant]
     Active Substance: INSULIN DETEMIR

REACTIONS (3)
  - Injection site mass [Not Recovered/Not Resolved]
  - Device defective [Unknown]
  - Wrong technique in device usage process [Recovered/Resolved]

NARRATIVE: CASE EVENT DATE: 201901
